FAERS Safety Report 7944037-4 (Version None)
Quarter: 2011Q4

REPORT INFORMATION
  Report Type: 
  Country: None (occurrence: None)
  Receive Date: 20111128
  Receipt Date: 20111117
  Transmission Date: 20120403
  Serious: Yes (Hospitalization)
  Sender: FDA-Public Use
  Company Number: FR-ASTRAZENECA-2011SE70113

PATIENT
  Age: 26175 Day
  Sex: Female

DRUGS (12)
  1. CELOCURINE [Suspect]
     Indication: INDUCTION OF ANAESTHESIA
     Route: 042
     Dates: start: 20110504, end: 20110504
  2. KETAMINE HCL [Suspect]
     Route: 042
     Dates: start: 20110504, end: 20110504
  3. MIDAZOLAM HCL [Suspect]
     Route: 042
     Dates: start: 20110504, end: 20110504
  4. LEVOTHYROXINE SODIUM [Concomitant]
  5. ESOMEPRAZOLE [Concomitant]
  6. RAMIPRIL [Concomitant]
  7. NAROPIN [Suspect]
     Route: 042
     Dates: start: 20110504, end: 20110504
  8. AMLODIPINE [Concomitant]
  9. ACETAMINOPHEN [Concomitant]
  10. MIANSERINE [Concomitant]
  11. PROPOFOL [Suspect]
     Route: 042
     Dates: start: 20110504, end: 20110504
  12. SUFENTA PRESERVATIVE FREE [Suspect]
     Route: 042
     Dates: start: 20110504, end: 20110504

REACTIONS (1)
  - ANAPHYLACTIC SHOCK [None]
